FAERS Safety Report 13416525 (Version 2)
Quarter: 2017Q2

REPORT INFORMATION
  Report Type: Spontaneous
  Country: FI (occurrence: FI)
  Receive Date: 20170406
  Receipt Date: 20170509
  Transmission Date: 20170830
  Serious: Yes (Other)
  Sender: FDA-Public Use
  Company Number: FI-MYLANLABS-2017M1020686

PATIENT

DRUGS (2)
  1. PRIMOLUT-NOR [Concomitant]
     Indication: MENSTRUAL DISORDER
     Dosage: 10 MG, QD
     Route: 048
     Dates: start: 20161225, end: 20170103
  2. MYLAN-PANTOPRAZOLE [Suspect]
     Active Substance: PANTOPRAZOLE SODIUM
     Indication: ABDOMINAL PAIN
     Dosage: 40 MG, QD
     Route: 048
     Dates: start: 20161212, end: 20170107

REACTIONS (9)
  - Asthenia [Recovered/Resolved]
  - Alanine aminotransferase increased [Recovered/Resolved]
  - Arrhythmia [Recovered/Resolved]
  - Drug ineffective [Recovered/Resolved]
  - Malaise [Recovered/Resolved]
  - Blood cholesterol increased [Recovered/Resolved]
  - Blood sodium decreased [Recovered/Resolved]
  - Low density lipoprotein increased [Recovered/Resolved]
  - Headache [Recovered/Resolved]

NARRATIVE: CASE EVENT DATE: 20170105
